FAERS Safety Report 16219190 (Version 1)
Quarter: 2019Q2

REPORT INFORMATION
  Report Type: Spontaneous
  Country: US (occurrence: US)
  Receive Date: 20190419
  Receipt Date: 20190419
  Transmission Date: 20190711
  Serious: No
  Sender: FDA-Public Use
  Company Number: US-ASTRAZENECA-2019SE46207

PATIENT
  Sex: Female

DRUGS (1)
  1. IMFINZI [Suspect]
     Active Substance: DURVALUMAB
     Route: 042

REACTIONS (15)
  - Headache [Not Recovered/Not Resolved]
  - Lymphadenopathy [Unknown]
  - Blood glucose fluctuation [Unknown]
  - Fatigue [Not Recovered/Not Resolved]
  - Rash [Unknown]
  - Constipation [Unknown]
  - Weight increased [Unknown]
  - Pyrexia [Unknown]
  - Eye pain [Unknown]
  - Swelling [Unknown]
  - Alopecia [Unknown]
  - Libido decreased [Unknown]
  - Arthralgia [Unknown]
  - Thyroid mass [Unknown]
  - Urinary tract infection [Not Recovered/Not Resolved]
